FAERS Safety Report 26167637 (Version 1)
Quarter: 2025Q4

REPORT INFORMATION
  Report Type: Spontaneous
  Country: US (occurrence: US)
  Receive Date: 20251217
  Receipt Date: 20251217
  Transmission Date: 20260117
  Serious: Yes (Hospitalization)
  Sender: PACIRA
  Company Number: US-ORG100016242-2025000106

PATIENT
  Age: 89 Year
  Sex: Female
  Weight: 87 kg

DRUGS (3)
  1. EXPAREL [Suspect]
     Active Substance: BUPIVACAINE
     Indication: Haemorrhoid operation
     Route: 050
     Dates: start: 20250314, end: 20250314
  2. MARCAINE [Suspect]
     Active Substance: BUPIVACAINE HYDROCHLORIDE
     Indication: Haemorrhoid operation
     Route: 050
     Dates: start: 20250314, end: 20250314
  3. EPINEPHRINE [Suspect]
     Active Substance: EPINEPHRINE
     Indication: Haemorrhoid operation
     Dosage: NOT PROVIDED
     Route: 050
     Dates: start: 20250314, end: 20250314

REACTIONS (2)
  - Local anaesthetic systemic toxicity [Not Recovered/Not Resolved]
  - Labelled drug-drug interaction medication error [Not Recovered/Not Resolved]

NARRATIVE: CASE EVENT DATE: 20250314
